FAERS Safety Report 25947035 (Version 1)
Quarter: 2025Q4

REPORT INFORMATION
  Report Type: Spontaneous
  Country: CN (occurrence: CN)
  Receive Date: 20251022
  Receipt Date: 20251022
  Transmission Date: 20260118
  Serious: Yes (Other)
  Sender: NOVARTIS
  Company Number: CN-002147023-NVSC2025CN161466

PATIENT

DRUGS (6)
  1. SACUBITRIL\VALSARTAN [Suspect]
     Active Substance: SACUBITRIL\VALSARTAN
     Indication: Vasodilatation
     Dosage: 50 MG, BID
     Route: 048
  2. WARFARIN [Concomitant]
     Active Substance: WARFARIN
     Indication: Anticoagulant therapy
     Dosage: 2.5 MG, QD (ADJUSTED ACCORDING TO THE INTERNATIONAL  NORMALIZED RATIO (INR), WITH A TARGET INR OF 1.
     Route: 048
  3. FUROSEMIDE [Concomitant]
     Active Substance: FUROSEMIDE
     Indication: Diuretic therapy
     Dosage: 40 MG (20-40 MG/TIME, 1-2 TIMES/DAY)
     Route: 048
  4. DIGOXIN [Concomitant]
     Active Substance: DIGOXIN
     Indication: Symptomatic treatment
     Dosage: 0.125 MG, QD
     Route: 048
  5. ISOSORBIDE DINITRATE [Concomitant]
     Active Substance: ISOSORBIDE DINITRATE
     Indication: Product used for unknown indication
     Dosage: 20 MG, TID (10-20 MG/TIME, THREE TIMES A DAY)
     Route: 048
  6. METOPROLOL SUCCINATE [Concomitant]
     Active Substance: METOPROLOL SUCCINATE
     Indication: Product used for unknown indication
     Dosage: 23.75 MG, BID
     Route: 048

REACTIONS (2)
  - Cardiac failure [Unknown]
  - Off label use [Unknown]
